FAERS Safety Report 22371938 (Version 1)
Quarter: 2023Q2

REPORT INFORMATION
  Report Type: Spontaneous
  Country: FR (occurrence: None)
  Receive Date: 20230526
  Receipt Date: 20230526
  Transmission Date: 20230721
  Serious: Yes (Other)
  Sender: FDA-Public Use
  Company Number: FR-ROCHE-3357112

PATIENT
  Age: 61 Year
  Sex: Male

DRUGS (6)
  1. RIVOTRIL [Suspect]
     Active Substance: CLONAZEPAM
     Indication: Spinal pain
     Route: 048
  2. RIVOTRIL [Suspect]
     Active Substance: CLONAZEPAM
     Indication: Anxiety
     Dosage: HAS STARTED A GRADUAL DECREASE IN DOSES (- 5 DROPS/DAY EVERY MONTH)
     Route: 048
  3. MORPHINE [Concomitant]
     Active Substance: MORPHINE
  4. PAROXETINE [Concomitant]
     Active Substance: PAROXETINE
  5. ALPRAZOLAM [Concomitant]
     Active Substance: ALPRAZOLAM
  6. ZOLPIDEM [Concomitant]
     Active Substance: ZOLPIDEM TARTRATE

REACTIONS (1)
  - Drug use disorder [Not Recovered/Not Resolved]
